FAERS Safety Report 22279372 (Version 1)
Quarter: 2023Q2

REPORT INFORMATION
  Report Type: Spontaneous
  Country: NL (occurrence: NL)
  Receive Date: 20230503
  Receipt Date: 20230503
  Transmission Date: 20230721
  Serious: Yes (Hospitalization)
  Sender: FDA-Public Use
  Company Number: None

PATIENT
  Sex: Male
  Weight: 50 kg

DRUGS (9)
  1. KERENDIA [Suspect]
     Active Substance: FINERENONE
     Indication: Chronic kidney disease
     Dosage: 10 MG, BID
     Route: 048
     Dates: start: 20221130, end: 20230330
  2. KETAZED [Concomitant]
     Dosage: 0.25 MG/ML
  3. MAGNESIUM CITRATE [Concomitant]
     Active Substance: MAGNESIUM CITRATE
     Dosage: 376 MG
  4. DIPROSONE [Concomitant]
     Active Substance: BETAMETHASONE DIPROPIONATE
     Dosage: 0.5 MG/G
  5. POTASSIUM CITRATE [Concomitant]
     Active Substance: POTASSIUM CITRATE
     Dosage: 500 MG
  6. CROMOLYN [Concomitant]
     Active Substance: CROMOLYN
     Dosage: 200 MG
  7. BUDESONIDE [Concomitant]
     Active Substance: BUDESONIDE
     Dosage: 200 ?G/DOSIS
  8. SODIUM LAURYL SULFATE;SORBITOL [Concomitant]
     Dosage: 9/625 MG/ML
  9. ALBUTEROL [Concomitant]
     Active Substance: ALBUTEROL
     Dosage: 100 ?G/DOSE

REACTIONS (1)
  - Pruritus [Not Recovered/Not Resolved]
